FAERS Safety Report 9733153 (Version 1)
Quarter: 2013Q4

REPORT INFORMATION
  Report Type: Spontaneous
  Country: FR (occurrence: FR)
  Receive Date: 20131205
  Receipt Date: 20131205
  Transmission Date: 20140711
  Serious: Yes (Life-Threatening, Other)
  Sender: FDA-Public Use
  Company Number: FR-B.I. PHARMACEUTICALS,INC./RIDGEFIELD-2013-BI-40369FF

PATIENT
  Age: 62 Year
  Sex: Male

DRUGS (8)
  1. PRADAXA [Suspect]
     Dosage: 220 MG
     Route: 048
     Dates: start: 201206, end: 20131024
  2. VENLAFAXINE [Suspect]
     Route: 048
  3. VALPROIC ACID [Concomitant]
  4. IRBESARTAN [Concomitant]
  5. RYTHMODAN [Concomitant]
  6. VENTOLINE [Concomitant]
  7. XALATAN 0.005 PER CENT [Concomitant]
  8. PANTOPRAZOLE [Concomitant]

REACTIONS (3)
  - Cerebral haematoma [Not Recovered/Not Resolved]
  - Hemiplegia [Not Recovered/Not Resolved]
  - Dysarthria [Not Recovered/Not Resolved]
